FAERS Safety Report 17299028 (Version 1)
Quarter: 2020Q1

REPORT INFORMATION
  Report Type: Spontaneous
  Country: GB (occurrence: GB)
  Receive Date: 20200122
  Receipt Date: 20200122
  Transmission Date: 20200409
  Serious: Yes (Other)
  Sender: FDA-Public Use
  Company Number: GB-TEVA-2020-GB-1170824

PATIENT
  Age: 74 Year
  Sex: Female
  Weight: 66 kg

DRUGS (18)
  1. PRAVASTATIN. [Concomitant]
     Active Substance: PRAVASTATIN
     Dosage: AT NIGHT 1 DOSAGE FORMS
     Dates: start: 20191209
  2. WARFARIN SODIUM. [Concomitant]
     Active Substance: WARFARIN SODIUM
     Dosage: AS DIRECTED.1 DOSAGE FORMS
     Dates: start: 20190415
  3. CLOBEX [Concomitant]
     Active Substance: CLOBETASOL PROPIONATE
     Dosage: APPLY BEFORE WASJHING HAIR LEAVE ON SCALP FOR 1...
     Dates: start: 20191030, end: 20191129
  4. PRAVASTATIN. [Suspect]
     Active Substance: PRAVASTATIN
     Dosage: 40 MG
     Dates: start: 20191223
  5. CLOBETASONE BUTYRATE [Concomitant]
     Active Substance: CLOBETASONE BUTYRATE
     Dosage: APPLY 1-2 TIMES/DAY TO RED ITCHY PATCHES FOR 2
     Dates: start: 20191121, end: 20191219
  6. SUKKARTO [Concomitant]
     Active Substance: METFORMIN HYDROCHLORIDE
     Dosage: 2 DOSAGE FORMS
     Dates: start: 20190522
  7. ATORVASTATIN [Concomitant]
     Active Substance: ATORVASTATIN
     Dosage: 1 DOSAGE FORMS
     Dates: start: 20190415, end: 20191209
  8. SPIRONOLACTONE. [Concomitant]
     Active Substance: SPIRONOLACTONE
     Dosage: 0.5 DOSAGE FORMS
     Dates: start: 20190415
  9. FOSTAIR [Concomitant]
     Active Substance: BECLOMETHASONE\FORMOTEROL
     Dosage: PUFFS. 4 DOSAGE FORMS
     Dates: start: 20190415
  10. LEVOTHYROXINE. [Concomitant]
     Active Substance: LEVOTHYROXINE
     Dosage: EACH MORNING. 1 DOSAGE FORMS
     Dates: start: 20190415
  11. BETAMETHASONE VALERATE. [Concomitant]
     Active Substance: BETAMETHASONE VALERATE
     Dosage: . 2 DOSAGE FORMS
     Dates: start: 20191030, end: 20191127
  12. BRALTUS [Concomitant]
     Active Substance: TIOTROPIUM BROMIDE
     Dosage: 1 DOSAGE FORMS
     Route: 055
     Dates: start: 20190415
  13. BISOPROLOL [Concomitant]
     Active Substance: BISOPROLOL
     Dosage: 1 DOSAGE FORMS
     Dates: start: 20190415
  14. SALBUTAMOL [Concomitant]
     Active Substance: ALBUTEROL
     Dosage: 2 PUFFS UP TO FOUR TIMES DAILY
     Dates: start: 20190415
  15. FUROSEMIDE. [Concomitant]
     Active Substance: FUROSEMIDE
     Dosage: 2 DOSAGE FORMS
     Dates: start: 20190415
  16. MONTELUKAST [Concomitant]
     Active Substance: MONTELUKAST SODIUM
     Dosage: AT NIGHT. 1 DOSAGE FORMS
     Dates: start: 20190415
  17. RAMIPRIL. [Concomitant]
     Active Substance: RAMIPRIL
     Dosage: 2 DOSAGE FORMS
     Dates: start: 20190415
  18. DIGOXIN. [Concomitant]
     Active Substance: DIGOXIN
     Dosage: 3 DOSAGE FORMS
     Dates: start: 20190415

REACTIONS (1)
  - Myositis [Recovering/Resolving]

NARRATIVE: CASE EVENT DATE: 20191223
